FAERS Safety Report 9589133 (Version 2)
Quarter: 2013Q4

REPORT INFORMATION
  Report Type: Spontaneous
  Country: US (occurrence: US)
  Receive Date: 20131003
  Receipt Date: 20131003
  Transmission Date: 20140711
  Serious: No
  Sender: FDA-Public Use
  Company Number: US-AMGEN-USASP2012063645

PATIENT
  Age: 61 Year
  Sex: Male
  Weight: 75.74 kg

DRUGS (10)
  1. ENBREL [Suspect]
     Indication: RHEUMATOID ARTHRITIS
     Dosage: 50 MG, QWK
     Route: 058
  2. ENBREL [Suspect]
  3. AMLODIPINE [Concomitant]
     Dosage: 10 MG, UNK
  4. METHOTREXATE [Concomitant]
     Dosage: 2.5 MG, UNK
  5. FOLBEE [Concomitant]
     Dosage: UNK
  6. NEXIUM                             /01479302/ [Concomitant]
     Dosage: 40 MG, UNK
  7. CENTRUM                            /07499601/ [Concomitant]
     Dosage: UNK
  8. ALEVE [Concomitant]
     Dosage: 220 MG, UNK
  9. DECONGESTANT                       /00070002/ [Concomitant]
     Dosage: 30 MG, UNK
  10. ZINC [Concomitant]
     Dosage: 30 MG, UNK

REACTIONS (3)
  - Diverticulitis [Recovering/Resolving]
  - Rheumatoid arthritis [Unknown]
  - Drug ineffective [Unknown]
